FAERS Safety Report 23046804 (Version 4)
Quarter: 2023Q4

REPORT INFORMATION
  Report Type: Report from Study
  Country: US (occurrence: US)
  Receive Date: 20231009
  Receipt Date: 20231110
  Transmission Date: 20240109
  Serious: Yes (Hospitalization)
  Sender: FDA-Public Use
  Company Number: US-PFIZER INC-PV202300163933

PATIENT
  Age: 65 Year
  Sex: Female
  Weight: 106.6 kg

DRUGS (2)
  1. PALBOCICLIB [Suspect]
     Active Substance: PALBOCICLIB
     Indication: Breast cancer
     Dosage: 125 MG, DAILY
     Route: 048
     Dates: start: 20210629, end: 20231031
  2. ANASTROZOLE [Suspect]
     Active Substance: ANASTROZOLE
     Indication: Breast cancer
     Dosage: 1 MG, DAILY
     Route: 048
     Dates: start: 20210629, end: 20231031

REACTIONS (1)
  - Pain [Recovered/Resolved with Sequelae]

NARRATIVE: CASE EVENT DATE: 20230927
